FAERS Safety Report 13027561 (Version 1)
Quarter: 2016Q4

REPORT INFORMATION
  Report Type: Spontaneous
  Country: CA (occurrence: CA)
  Receive Date: 20161214
  Receipt Date: 20161214
  Transmission Date: 20170207
  Serious: Yes (Disabling, Other)
  Sender: FDA-Public Use
  Company Number: CA-CELLTRION INC.-2016CA011034

PATIENT

DRUGS (11)
  1. OTEZLA [Concomitant]
     Active Substance: APREMILAST
     Dosage: UNK
  2. METHOTREXATE. [Concomitant]
     Active Substance: METHOTREXATE
     Dosage: UNK, WEEKLY
  3. CYCLOSPORIN [Concomitant]
     Active Substance: CYCLOSPORINE
     Dosage: UNK
  4. METHOTREXATE. [Concomitant]
     Active Substance: METHOTREXATE
     Dosage: UNK, WEEKLY
  5. HUMIRA [Concomitant]
     Active Substance: ADALIMUMAB
     Dosage: UNK, WEEKLY
  6. SORIATANE [Concomitant]
     Active Substance: ACITRETIN
     Dosage: 10 MG, 3X/WEEK
     Route: 048
     Dates: start: 20160713
  7. HUMIRA [Concomitant]
     Active Substance: ADALIMUMAB
     Dosage: UNK, WEEKLY
  8. OTEZLA [Concomitant]
     Active Substance: APREMILAST
     Dosage: UNK
  9. INFLECTRA [Suspect]
     Active Substance: INFLIXIMAB-DYYB
     Indication: PSORIATIC ARTHROPATHY
  10. INFLECTRA [Suspect]
     Active Substance: INFLIXIMAB-DYYB
     Indication: PSORIASIS
     Dosage: 400MG ON WEEKS 0, 2, 6 THEN EVERY 8 WEEKS FOR 12 MONTHS
     Route: 042
     Dates: start: 20160602, end: 20160830
  11. CYCLOSPORIN [Concomitant]
     Active Substance: CYCLOSPORINE
     Dosage: UNK

REACTIONS (6)
  - Abasia [Not Recovered/Not Resolved]
  - Condition aggravated [Unknown]
  - Psoriatic arthropathy [Unknown]
  - Weight increased [Unknown]
  - Psoriasis [Unknown]
  - Drug ineffective [Not Recovered/Not Resolved]

NARRATIVE: CASE EVENT DATE: 2016
